FAERS Safety Report 10450084 (Version 1)
Quarter: 2014Q3

REPORT INFORMATION
  Report Type: Spontaneous
  Country: US (occurrence: None)
  Receive Date: 20140910
  Receipt Date: 20140910
  Transmission Date: 20150326
  Serious: Yes (Death)
  Sender: FDA-Public Use
  Company Number: CPS-2014-0053

PATIENT
  Age: 50 Year
  Sex: Female
  Weight: 109.3 kg

DRUGS (19)
  1. DOXEPIN (DOXEPIN) (DOXEPIN) [Suspect]
     Active Substance: DOXEPIN
     Indication: PRODUCT USED FOR UNKNOWN INDICATION
     Dosage: UNK
     Dates: start: 2010
  2. VITAMIN B12 (VITAMIN B12) [Concomitant]
  3. METHAMPHETAMINE HYDROCHLORIDE TABLETS (METHAMPHETAMINE HYDROCHLORIDE) TABLET [Suspect]
     Active Substance: METHAMPHETAMINE HYDROCHLORIDE
     Indication: PRODUCT USED FOR UNKNOWN INDICATION
  4. CITALOPRAM [Concomitant]
     Active Substance: CITALOPRAM HYDROBROMIDE
  5. MARIJUANA [Concomitant]
     Active Substance: CANNABIS SATIVA SUBSP. INDICA TOP
  6. ETHANOL (ETHANOL) [Suspect]
     Active Substance: ALCOHOL
     Indication: PRODUCT USED FOR UNKNOWN INDICATION
  7. TEMAZEPAM (TEMAZEPAM) [Suspect]
     Active Substance: TEMAZEPAM
     Indication: PRODUCT USED FOR UNKNOWN INDICATION
     Dosage: UNK
  8. GABAPENTIN. [Concomitant]
     Active Substance: GABAPENTIN
  9. BECLOMETHASONE DIPROPIONATE (BECLOMETHASONE DIPROPIONATE) [Concomitant]
  10. DIAZEPAM (DIAZEPAM) [Suspect]
     Active Substance: DIAZEPAM
     Indication: PRODUCT USED FOR UNKNOWN INDICATION
     Dosage: UNK
     Dates: start: 2000
  11. HYDROCODONE (HYDROCODONE) [Suspect]
     Active Substance: HYDROCODONE
     Indication: PRODUCT USED FOR UNKNOWN INDICATION
     Dosage: UNK
     Dates: start: 2000
  12. NORTRIPTYLINE (NORTRIPTYLINE) [Suspect]
     Active Substance: NORTRIPTYLINE
     Indication: PRODUCT USED FOR UNKNOWN INDICATION
     Dates: start: 2011
  13. ACETAMINOPHEN (ACETAMINOPHEN) [Suspect]
     Active Substance: ACETAMINOPHEN
     Indication: PRODUCT USED FOR UNKNOWN INDICATION
     Dosage: UNK
  14. LEVOTHYROXINE [Concomitant]
     Active Substance: LEVOTHYROXINE
  15. POTASSIUM CHLORIDE. [Concomitant]
     Active Substance: POTASSIUM CHLORIDE
  16. MULTIVITAMIN (MULTIVITAMIN) [Concomitant]
  17. GINKO BILOBA (GINKO BILOBA) [Concomitant]
  18. XOPENEX HFA [Concomitant]
     Active Substance: LEVALBUTEROL TARTRATE
  19. FUROSEMIDE (FUROSEMIDE) [Concomitant]
     Active Substance: FUROSEMIDE

REACTIONS (2)
  - Drug interaction [None]
  - Exposure via ingestion [None]

NARRATIVE: CASE EVENT DATE: 20131125
